FAERS Safety Report 16982923 (Version 2)
Quarter: 2020Q2

REPORT INFORMATION
  Report Type: Spontaneous
  Country: IT (occurrence: IT)
  Receive Date: 20191101
  Receipt Date: 20200401
  Transmission Date: 20200713
  Serious: No
  Sender: FDA-Public Use
  Company Number: IT-JNJFOC-20191038425

PATIENT
  Age: 25 Year
  Sex: Male

DRUGS (1)
  1. RIVAROXABAN [Suspect]
     Active Substance: RIVAROXABAN
     Indication: CEREBRAL VENOUS THROMBOSIS
     Dosage: 20 MG, QD
     Route: 048
     Dates: start: 20171201, end: 20190707

REACTIONS (2)
  - Oedema peripheral [Unknown]
  - Headache [Unknown]

NARRATIVE: CASE EVENT DATE: 20180707
